FAERS Safety Report 13748450 (Version 1)
Quarter: 2017Q3

REPORT INFORMATION
  Report Type: Spontaneous
  Country: SE (occurrence: SE)
  Receive Date: 20170713
  Receipt Date: 20170713
  Transmission Date: 20171127
  Serious: Yes (Other)
  Sender: FDA-Public Use
  Company Number: SE-ACCORD-053576

PATIENT
  Sex: Female

DRUGS (11)
  1. ALVEDON [Concomitant]
     Active Substance: ACETAMINOPHEN
  2. NITROLINGUAL [Concomitant]
     Active Substance: NITROGLYCERIN
  3. AMLODIPINE [Suspect]
     Active Substance: AMLODIPINE BESYLATE
     Indication: HYPERTENSION
     Dosage: 0.25 MG/DAY
     Route: 048
     Dates: start: 20150214, end: 20151202
  4. LOSARTAN/HYDROCHLOORTHIAZIDE AMNEAL [Concomitant]
  5. ATORVASTATIN KRKA [Concomitant]
     Active Substance: ATORVASTATIN
  6. BETAPRED [Concomitant]
     Active Substance: BETAMETHASONE SODIUM PHOSPHATE
  7. SELOKENZOC [Concomitant]
     Active Substance: METOPROLOL SUCCINATE
  8. TROMBYL [Concomitant]
     Active Substance: ASPIRIN
  9. CLOPIDOGREL [Concomitant]
     Active Substance: CLOPIDOGREL BISULFATE
  10. METFORMIN ACTAVIS [Concomitant]
     Active Substance: METFORMIN HYDROCHLORIDE
  11. DIKLOFENAK MYLAN [Concomitant]

REACTIONS (2)
  - Oral mucosal blistering [Unknown]
  - Stomatitis [Unknown]
